FAERS Safety Report 14433689 (Version 2)
Quarter: 2018Q1

REPORT INFORMATION
  Report Type: Spontaneous
  Country: JP (occurrence: JP)
  Receive Date: 20180124
  Receipt Date: 20180207
  Transmission Date: 20180509
  Serious: Yes (Death)
  Sender: FDA-Public Use
  Company Number: JP-ALLERGAN-1803475US

PATIENT
  Age: 35 Year
  Sex: Male

DRUGS (9)
  1. CLONAZEPAM. [Concomitant]
     Active Substance: CLONAZEPAM
     Dosage: UNK
     Route: 048
     Dates: start: 20171109, end: 20180103
  2. ASENAPINE MALEATE - BP [Suspect]
     Active Substance: ASENAPINE MALEATE
     Indication: SCHIZOPHRENIA
     Dosage: 10 MG, QD
     Route: 060
     Dates: start: 20171225, end: 20180103
  3. ARIPRAZOLE [Concomitant]
     Active Substance: ARIPIPRAZOLE
     Dosage: 24 MG, QD
     Route: 048
     Dates: start: 20171210, end: 20180104
  4. TANDOSPIRONE CITRATE [Concomitant]
     Active Substance: TANDOSPIRONE CITRATE
     Dosage: UNK
     Route: 048
     Dates: start: 20171209, end: 20180103
  5. REMERON [Concomitant]
     Active Substance: MIRTAZAPINE
     Dosage: 30 MG, QD
     Route: 048
     Dates: start: 20171216, end: 20180103
  6. ESTAZOLAM. [Concomitant]
     Active Substance: ESTAZOLAM
     Dosage: UNK
     Dates: start: 20171209, end: 20180103
  7. TRIHEXYPHENIDYL HYDROCHLORIDE. [Concomitant]
     Active Substance: TRIHEXYPHENIDYL HYDROCHLORIDE
     Dosage: UNK
     Dates: start: 20171228, end: 20180103
  8. PALIPERIDONE PALMITATE [Concomitant]
     Active Substance: PALIPERIDONE PALMITATE
     Dosage: 100 MG, QD
     Route: 030
     Dates: start: 20171102, end: 20171109
  9. QUAZEPAM. [Concomitant]
     Active Substance: QUAZEPAM
     Dosage: UNK
     Dates: start: 20171209, end: 20180103

REACTIONS (1)
  - Asphyxia [Fatal]

NARRATIVE: CASE EVENT DATE: 20180104
